FAERS Safety Report 12710976 (Version 3)
Quarter: 2017Q3

REPORT INFORMATION
  Report Type: Report from Study
  Country: DE (occurrence: DE)
  Receive Date: 20160902
  Receipt Date: 20170718
  Transmission Date: 20171127
  Serious: Yes (Death, Other)
  Sender: FDA-Public Use
  Company Number: DE-GILEAD-2016-0230620

PATIENT
  Age: 75 Year
  Sex: Male
  Weight: 77 kg

DRUGS (8)
  1. IDELALISIB [Suspect]
     Active Substance: IDELALISIB
     Indication: CHRONIC LYMPHOCYTIC LEUKAEMIA
     Dosage: UNK
     Route: 065
  2. IDELALISIB [Suspect]
     Active Substance: IDELALISIB
     Dosage: 100 MG, QD
     Route: 048
     Dates: start: 20160209, end: 20160820
  3. OBINUTUZUMAB. [Suspect]
     Active Substance: OBINUTUZUMAB
     Indication: CHRONIC LYMPHOCYTIC LEUKAEMIA
     Dosage: 1000 MG, CYCLICAL
     Route: 042
     Dates: start: 20160112, end: 20160614
  4. TORASEMID [Concomitant]
     Active Substance: TORSEMIDE
     Dosage: 7.5 MG, QD
     Route: 048
     Dates: start: 2014
  5. MARCUMAR [Concomitant]
     Active Substance: PHENPROCOUMON
     Dosage: 15 MG, QD
     Route: 048
     Dates: start: 2014
  6. BENDAMUSTINE [Suspect]
     Active Substance: BENDAMUSTINE
     Indication: CHRONIC LYMPHOCYTIC LEUKAEMIA
     Dosage: 154 MG, CYCLICAL
     Route: 042
     Dates: start: 20151116, end: 20151215
  7. PENTACARINAT [Concomitant]
     Active Substance: PENTAMIDINE ISETHIONATE
     Dosage: 300 MG, UNK
     Route: 050
     Dates: start: 20160419
  8. ALLOPURINOL. [Concomitant]
     Active Substance: ALLOPURINOL
     Dosage: 100 MG, QD
     Route: 048
     Dates: start: 2009

REACTIONS (4)
  - Cardiac failure [Fatal]
  - Cardiac disorder [Fatal]
  - Eosinophilia [Not Recovered/Not Resolved]
  - Cardiac arrest [Fatal]

NARRATIVE: CASE EVENT DATE: 20160820
